FAERS Safety Report 9565894 (Version 1)
Quarter: 2013Q3

REPORT INFORMATION
  Report Type: Spontaneous
  Country: GB (occurrence: GB)
  Receive Date: 20130930
  Receipt Date: 20130930
  Transmission Date: 20140515
  Serious: Yes (Hospitalization)
  Sender: FDA-Public Use
  Company Number: PHHY2013GB107007

PATIENT
  Age: 54 Year
  Sex: Female

DRUGS (1)
  1. CO-CODAMOL [Suspect]
     Dosage: 2 DF, UNK

REACTIONS (5)
  - Pulmonary oedema [Recovered/Resolved]
  - Dyspnoea [Recovered/Resolved]
  - Hypoxia [Recovered/Resolved]
  - Tachycardia [Unknown]
  - Hypotension [Unknown]
